FAERS Safety Report 10422637 (Version 1)
Quarter: 2014Q3

REPORT INFORMATION
  Report Type: Report from Study
  Country: IL (occurrence: IL)
  Receive Date: 20140902
  Receipt Date: 20140902
  Transmission Date: 20150326
  Serious: Yes (Death, Hospitalization)
  Sender: FDA-Public Use
  Company Number: IL-009507513-1408ISR016731

PATIENT
  Age: 63 Year
  Sex: Male

DRUGS (7)
  1. INTERFERON ALFA-2A [Suspect]
     Active Substance: INTERFERON ALFA-2A
     Indication: HEPATITIS C
     Dosage: DAILY DOSE: 180 UNIT NOT REPORTED, QW
     Route: 058
     Dates: start: 201307, end: 2013
  2. LEVOMEPROMAZINE [Concomitant]
     Active Substance: LEVOMEPROMAZINE
     Indication: SCHIZOPHRENIA
     Route: 048
  3. BOCEPREVIR [Suspect]
     Active Substance: BOCEPREVIR
     Indication: HEPATITIS C
     Dosage: DAILY DOSE: 2400 UNIT NOT REPORTED, TID
     Route: 048
     Dates: start: 201308, end: 201308
  4. BROTIZOLAM [Concomitant]
     Active Substance: BROTIZOLAM
     Indication: INSOMNIA
     Route: 048
  5. RIBAVIRIN. [Suspect]
     Active Substance: RIBAVIRIN
     Indication: HEPATITIS C
     Dosage: DAILY DOSE: 1000 UNIT NOT REPORTED, BID
     Route: 048
     Dates: start: 201307, end: 201307
  6. RISPERIDONE. [Concomitant]
     Active Substance: RISPERIDONE
     Indication: SCHIZOPHRENIA
     Route: 048
  7. BIPERIDEN HYDROCHLORIDE [Concomitant]
     Active Substance: BIPERIDEN HYDROCHLORIDE
     Indication: SCHIZOPHRENIA
     Route: 048

REACTIONS (2)
  - Chest pain [Unknown]
  - Death [Fatal]

NARRATIVE: CASE EVENT DATE: 20140226
